FAERS Safety Report 25237030 (Version 2)
Quarter: 2025Q3

REPORT INFORMATION
  Report Type: Report from Study
  Country: US (occurrence: US)
  Receive Date: 20250424
  Receipt Date: 20250704
  Transmission Date: 20251020
  Serious: Yes (Hospitalization)
  Sender: SUNOVION
  Company Number: US-SMPA-2025SPA004939

PATIENT

DRUGS (2)
  1. ORGOVYX [Suspect]
     Active Substance: RELUGOLIX
     Indication: Prostate cancer
     Route: 048
     Dates: start: 20250306, end: 20250306
  2. ORGOVYX [Suspect]
     Active Substance: RELUGOLIX
     Dosage: 120 MG, QD
     Route: 048
     Dates: start: 20250307

REACTIONS (6)
  - Coronary arterial stent insertion [Unknown]
  - Dehydration [Unknown]
  - Skin exfoliation [Unknown]
  - Arthropod bite [Unknown]
  - Fatigue [Unknown]
  - Product dose omission in error [Unknown]
